FAERS Safety Report 10795453 (Version 1)
Quarter: 2015Q1

REPORT INFORMATION
  Report Type: Spontaneous
  Country: US (occurrence: US)
  Receive Date: 20150215
  Receipt Date: 20150215
  Transmission Date: 20150721
  Serious: Yes (Hospitalization, Other)
  Sender: FDA-Public Use
  Company Number: PHHY2014US169278

PATIENT
  Sex: Male

DRUGS (20)
  1. LIORESAL [Suspect]
     Active Substance: BACLOFEN
     Dosage: 79.98 UG, QD (CONCENTRATION 500 MCG PER ML)
     Route: 037
     Dates: start: 20130306
  2. LIORESAL [Suspect]
     Active Substance: BACLOFEN
     Dosage: 141.45 UG, QD (CONCENTRATION 500 MCG PER ML)
     Route: 037
     Dates: start: 20131213
  3. LIORESAL [Suspect]
     Active Substance: BACLOFEN
     Dosage: 199.1 UG, QD (CONCENTRATION 2000 MCG PER ML)
     Route: 037
     Dates: start: 20141215
  4. LIORESAL [Suspect]
     Active Substance: BACLOFEN
     Dosage: 147.12 UG, QD (CONCENTRATION 500 MCG PER ML)
     Route: 037
     Dates: start: 20130802
  5. LIORESAL [Suspect]
     Active Substance: BACLOFEN
     Indication: MUSCLE SPASTICITY
     Dosage: 140.2 UG, QD
     Route: 037
  6. LIORESAL [Suspect]
     Active Substance: BACLOFEN
     Dosage: 95.91 UG, QD (CONCENTRATION 500 MCG PER ML)
     Route: 037
     Dates: start: 20130402
  7. LIORESAL [Suspect]
     Active Substance: BACLOFEN
     Dosage: 244.45 UG, QD (CONCENTRATION 500 MCG PER ML)
     Route: 037
     Dates: start: 20140506
  8. KEPPRA [Suspect]
     Active Substance: LEVETIRACETAM
     Indication: PRODUCT USED FOR UNKNOWN INDICATION
     Route: 065
  9. LIORESAL [Suspect]
     Active Substance: BACLOFEN
     Dosage: 117.74 UG, QD (CONCENTRATION 500 MCG PER ML)
     Route: 037
     Dates: start: 20130927
  10. LIORESAL [Suspect]
     Active Substance: BACLOFEN
     Dosage: 169.64 UG, QD (CONCENTRATION 500 MCG PER ML)
     Route: 037
     Dates: start: 20140217
  11. LIORESAL [Suspect]
     Active Substance: BACLOFEN
     Dosage: 293.35 UG, QD (CONCENTRATION 2000 MCG PER ML)
     Route: 037
     Dates: start: 20140822
  12. CLONIDINE. [Suspect]
     Active Substance: CLONIDINE
     Indication: PRODUCT USED FOR UNKNOWN INDICATION
     Route: 065
  13. MIRALAX [Suspect]
     Active Substance: POLYETHYLENE GLYCOL 3350
     Indication: PRODUCT USED FOR UNKNOWN INDICATION
     Route: 065
  14. NEXIUM [Suspect]
     Active Substance: ESOMEPRAZOLE MAGNESIUM
     Indication: PRODUCT USED FOR UNKNOWN INDICATION
     Route: 065
  15. ANESTHETICS NOS [Suspect]
     Active Substance: UNSPECIFIED INGREDIENT
     Indication: PRODUCT USED FOR UNKNOWN INDICATION
     Route: 065
  16. LIORESAL [Suspect]
     Active Substance: BACLOFEN
     Dosage: 122.58 UG, QD (CONCENTRATION 500 MCG PER ML)
     Route: 037
     Dates: start: 20130529
  17. LIORESAL [Suspect]
     Active Substance: BACLOFEN
     Dosage: 203.56 UG, QD (CONCENTRATION 500 MCG PER ML)
     Route: 037
     Dates: start: 20140404
  18. LIORESAL [Suspect]
     Active Substance: BACLOFEN
     Dosage: 293.35 UG, QD (CONCENTRATION 1000 MCG PER ML)
     Route: 037
     Dates: start: 20140620
  19. LIORESAL [Suspect]
     Active Substance: BACLOFEN
     Dosage: 102.1 UG, QD (CONCENTRATION 500 MCG PER ML)
     Route: 037
     Dates: start: 20130517
  20. LIORESAL [Suspect]
     Active Substance: BACLOFEN
     Dosage: 140 UG, QD (CONCENTRATION 2000 MCG PER ML)
     Route: 037
     Dates: start: 20141217

REACTIONS (9)
  - Impetigo [Not Recovered/Not Resolved]
  - Urinary retention postoperative [Not Recovered/Not Resolved]
  - Eczema [Not Recovered/Not Resolved]
  - Vomiting [Not Recovered/Not Resolved]
  - Seizure [Not Recovered/Not Resolved]
  - Implant site erosion [Not Recovered/Not Resolved]
  - Adverse drug reaction [Not Recovered/Not Resolved]
  - Purulent discharge [Not Recovered/Not Resolved]
  - Sleep disorder [Not Recovered/Not Resolved]
